FAERS Safety Report 9897635 (Version 2)
Quarter: 2014Q1

REPORT INFORMATION
  Report Type: Spontaneous
  Country: US (occurrence: US)
  Receive Date: 20140214
  Receipt Date: 20140214
  Transmission Date: 20141002
  Serious: Yes (Hospitalization, Other)
  Sender: FDA-Public Use
  Company Number: US-ABBVIE-14P-163-1191900-00

PATIENT
  Age: 63 Year
  Sex: Male
  Weight: 98.2 kg

DRUGS (13)
  1. RIBASPHERE [Suspect]
     Indication: PRODUCT USED FOR UNKNOWN INDICATION
     Route: 048
     Dates: start: 20131030, end: 20140107
  2. SOFOSBUVIR/LEDIPASVIR (SOFOSBUFIR, LEDIPASVIR) [Suspect]
     Indication: PRODUCT USED FOR UNKNOWN INDICATION
     Dosage: SOFOSBUVIR: 400 MG/D+LEDIPAVIR: 90 MG/D
     Route: 048
     Dates: start: 20131030
  3. LASIX [Concomitant]
     Indication: HEPATITIS C
     Route: 048
     Dates: start: 20140106
  4. HEPARIN [Concomitant]
     Indication: RENAL FAILURE ACUTE
     Route: 048
     Dates: start: 20140106
  5. PRENATAL MULTIVITAMIN WITH FOLIC ACID [Concomitant]
     Indication: SUPPLEMENTATION THERAPY
     Route: 048
     Dates: start: 20140106
  6. PRENATAL MULTIVITAMIN WITH FOLIC ACID [Concomitant]
     Route: 048
     Dates: start: 20130929
  7. VITAMIN D3 [Concomitant]
     Indication: SUPPLEMENTATION THERAPY
     Route: 048
     Dates: start: 20140106
  8. VITAMIN D3 [Concomitant]
     Route: 048
     Dates: start: 20130711
  9. TACROLIMUS [Concomitant]
     Indication: IMMUNOSUPPRESSION
     Route: 048
     Dates: start: 20140106
  10. TACROLIMUS [Concomitant]
     Route: 048
     Dates: start: 20131025
  11. MAGNESIUM OXIDE [Concomitant]
     Indication: SUPPLEMENTATION THERAPY
     Route: 048
     Dates: start: 20140107
  12. MAGNESIUM OXIDE [Concomitant]
     Route: 048
     Dates: start: 20130929
  13. ALBUMIN HUMAN [Concomitant]
     Indication: PRODUCT USED FOR UNKNOWN INDICATION
     Dosage: IV SOLUTION (MAXIMUM 50 G IN 24 HOURS)
     Route: 042
     Dates: start: 20140107, end: 20140108

REACTIONS (13)
  - Renal failure acute [Recovered/Resolved]
  - Fatigue [Not Recovered/Not Resolved]
  - Anaemia [Not Recovered/Not Resolved]
  - Pleural effusion [Not Recovered/Not Resolved]
  - Diarrhoea [Unknown]
  - Nephrolithiasis [Unknown]
  - Orthopnoea [Unknown]
  - Waist circumference increased [Unknown]
  - Rash macular [Unknown]
  - Atelectasis [Unknown]
  - Weight decreased [Unknown]
  - Bone marrow failure [Unknown]
  - Haemothorax [Unknown]
